FAERS Safety Report 21231702 (Version 1)
Quarter: 2022Q3

REPORT INFORMATION
  Report Type: Spontaneous
  Country: DE (occurrence: DE)
  Receive Date: 20220819
  Receipt Date: 20220819
  Transmission Date: 20221027
  Serious: Yes (Other)
  Sender: FDA-Public Use
  Company Number: None

PATIENT
  Age: 33 Year
  Sex: Male
  Weight: 117 kg

DRUGS (2)
  1. AMISULPRIDE [Suspect]
     Active Substance: AMISULPRIDE
     Indication: Psychotic disorder
     Dosage: 200 MG, DURATION-10 YRS
     Dates: start: 20121101, end: 20220728
  2. ARIPIPRAZOLE [Suspect]
     Active Substance: ARIPIPRAZOLE
     Indication: Psychotic disorder
     Dosage: 10 MG, DURATION-10 YRS
     Dates: start: 20121101, end: 20220728

REACTIONS (1)
  - Weight increased [Recovered/Resolved with Sequelae]

NARRATIVE: CASE EVENT DATE: 20121201
